FAERS Safety Report 8502315-4 (Version None)
Quarter: 2012Q3

REPORT INFORMATION
  Report Type: 
  Country: None (occurrence: None)
  Receive Date: 20120711
  Receipt Date: 20120531
  Transmission Date: 20120928
  Serious: No
  Sender: FDA-Public Use
  Company Number: US-COVIDIEN/TYCO HEALTHCARE/MALLINCKRODT-T201202487

PATIENT
  Sex: Female
  Weight: 81.633 kg

DRUGS (4)
  1. CO Q 10 [Concomitant]
     Indication: SUPPLEMENTATION THERAPY
     Dosage: UNK
  2. OXYCODONE HCL [Suspect]
     Indication: SPINAL PAIN
     Dosage: 4 TABS IN 24 HOUR PERIOD
     Dates: start: 20120424
  3. OXYCODONE HCL [Suspect]
     Dosage: 2 TABS IN 24 HOUR PERIOD
     Dates: end: 20120526
  4. ASPIRIN [Concomitant]
     Indication: HEADACHE
     Dosage: 325 MG PRN

REACTIONS (6)
  - HAEMATOCHEZIA [None]
  - NAUSEA [None]
  - HEADACHE [None]
  - CONSTIPATION [None]
  - ABDOMINAL PAIN [None]
  - COLD SWEAT [None]
